FAERS Safety Report 5226626-3 (Version None)
Quarter: 2007Q1

REPORT INFORMATION
  Report Type: 
  Country: None (occurrence: None)
  Receive Date: 20070201
  Receipt Date: 20070123
  Transmission Date: 20070707
  Serious: Yes (Other)
  Sender: FDA-Public Use
  Company Number: US-PFIZER INC-2007006986

PATIENT
  Sex: Male
  Weight: 97.5 kg

DRUGS (6)
  1. LYRICA [Suspect]
     Indication: DIABETIC NEUROPATHY
     Dates: start: 20070110, end: 20070113
  2. COZAAR [Concomitant]
  3. LASIX [Concomitant]
     Dates: start: 19990101
  4. POTASSIUM ACETATE [Concomitant]
     Dates: start: 19990101
  5. HUMULIN 70/30 [Concomitant]
     Dates: start: 19990101
  6. COPAXONE [Concomitant]
     Indication: MULTIPLE SCLEROSIS
     Dates: start: 19990101

REACTIONS (4)
  - COGNITIVE DISORDER [None]
  - DISORIENTATION [None]
  - DIZZINESS [None]
  - MEMORY IMPAIRMENT [None]
